FAERS Safety Report 9159385 (Version 2)
Quarter: 2013Q1

REPORT INFORMATION
  Report Type: Spontaneous
  Country: CH (occurrence: CH)
  Receive Date: 20130313
  Receipt Date: 20130314
  Transmission Date: 20140127
  Serious: Yes (Other)
  Sender: FDA-Public Use
  Company Number: PHHY2013CH023665

PATIENT
  Age: 79 Year
  Sex: Male
  Weight: 90 kg

DRUGS (2)
  1. CO-DIOVAN [Suspect]
     Indication: HYPERTENSION
     Dosage: 1 DF, DAILY (160 MG VALS AND 25 MG HCTZ)
     Dates: end: 20111205
  2. FLUDEX-SR [Concomitant]
     Indication: HYPERTENSION

REACTIONS (2)
  - Blood pressure inadequately controlled [Recovered/Resolved]
  - Blood glucose increased [Unknown]
